FAERS Safety Report 6280242-3 (Version None)
Quarter: 2009Q3

REPORT INFORMATION
  Report Type: 
  Country: None (occurrence: None)
  Receive Date: 20090723
  Receipt Date: 20090703
  Transmission Date: 20100115
  Serious: Yes (Hospitalization)
  Sender: FDA-Public Use
  Company Number: FR-GENENTECH-287358

PATIENT
  Sex: Male

DRUGS (4)
  1. BEVACIZUMAB [Suspect]
     Indication: COLORECTAL CANCER METASTATIC
     Dosage: 500 MG, Q14D
     Route: 042
     Dates: start: 20090701
  2. OXALIPLATIN [Suspect]
     Indication: COLORECTAL CANCER METASTATIC
     Dosage: 140 MG, Q14D
     Route: 042
     Dates: start: 20090701
  3. FOLINIC ACID [Suspect]
     Indication: COLORECTAL CANCER METASTATIC
     Dosage: 280 MG, Q14D
     Route: 042
     Dates: start: 20090701
  4. FLUOROURACIL [Suspect]
     Indication: COLORECTAL CANCER METASTATIC
     Dosage: 3400 MG, Q14D
     Route: 042
     Dates: start: 20090701

REACTIONS (1)
  - ARTERIOSPASM CORONARY [None]
